FAERS Safety Report 9650788 (Version 1)
Quarter: 2013Q4

REPORT INFORMATION
  Report Type: Report from Study
  Country: US (occurrence: US)
  Receive Date: 20131029
  Receipt Date: 20131029
  Transmission Date: 20140711
  Serious: No
  Sender: FDA-Public Use
  Company Number: US-009507513-1310USA007564

PATIENT
  Age: 25 Year
  Sex: Female
  Weight: 109.3 kg

DRUGS (1)
  1. IMPLANON [Suspect]
     Dosage: UNK
     Route: 059
     Dates: start: 20131002, end: 20131016

REACTIONS (3)
  - Mood altered [Unknown]
  - Irritability [Unknown]
  - Anger [Unknown]
